FAERS Safety Report 5403117-8 (Version None)
Quarter: 2007Q3

REPORT INFORMATION
  Report Type: 
  Country: None (occurrence: None)
  Receive Date: 20070713
  Receipt Date: 20070329
  Transmission Date: 20080115
  Serious: Yes (Hospitalization)
  Sender: FDA-Public Use
  Company Number: US-JNJFOC-20061106653

PATIENT
  Age: 23 Year
  Sex: Female
  Weight: 69.4003 kg

DRUGS (1)
  1. ORTHO EVRA [Suspect]
     Indication: CONTRACEPTION
     Dates: start: 20030701, end: 20030923

REACTIONS (1)
  - PULMONARY EMBOLISM [None]
